FAERS Safety Report 18867094 (Version 1)
Quarter: 2021Q1

REPORT INFORMATION
  Report Type: Spontaneous
  Country: SK (occurrence: SK)
  Receive Date: 20210209
  Receipt Date: 20210209
  Transmission Date: 20210420
  Serious: Yes (Other)
  Sender: FDA-Public Use
  Company Number: IT-SUNOVION-2021SUN000324

PATIENT

DRUGS (6)
  1. CLOZAPIN [Concomitant]
     Active Substance: CLOZAPINE
     Dosage: 0?25?250 MG
  2. LATUDA [Suspect]
     Active Substance: LURASIDONE HYDROCHLORIDE
     Dosage: 74 MG, QD
     Route: 048
     Dates: start: 20201007
  3. ALVENTA [Concomitant]
     Active Substance: VENLAFAXINE HYDROCHLORIDE
     Dosage: 150?75?0
  4. TRITTICO AC [Concomitant]
     Active Substance: TRAZODONE HYDROCHLORIDE
     Dosage: 0?0?150
  5. LATUDA [Suspect]
     Active Substance: LURASIDONE HYDROCHLORIDE
     Indication: SCHIZOPHRENIA
     Dosage: 37 MG, QD
     Route: 048
     Dates: start: 20200807
  6. HELEX SR [Concomitant]
     Dosage: DOSE 1?0?0,5 MG

REACTIONS (2)
  - Urinary retention [Recovered/Resolved]
  - Dysuria [Recovered/Resolved]
